FAERS Safety Report 6428958-X (Version None)
Quarter: 2009Q4

REPORT INFORMATION
  Report Type: 
  Country: None (occurrence: None)
  Receive Date: 20091102
  Receipt Date: 20091020
  Transmission Date: 20100525
  Serious: Yes (Other)
  Sender: FDA-Public Use
  Company Number: 232179J09USA

PATIENT
  Age: 47 Year
  Sex: Female

DRUGS (8)
  1. REBIF [Suspect]
     Indication: MULTIPLE SCLEROSIS
     Dosage: 44 MCG, 3 IN 1 WEEKS, SUBCUTANEOUS
     Route: 058
     Dates: start: 20060411
  2. PRAVASTATIN [Concomitant]
  3. CLONAZEPAM [Concomitant]
  4. LEVOTHYROXINE (LEVOTHYROXINE /00068001/) [Concomitant]
  5. VITAMIN D [Concomitant]
  6. PROTONIX [Concomitant]
  7. NEXIUM [Concomitant]
  8. METHSCOPOLAMINE (HYOSCINE METHOBROMIDE) [Concomitant]

REACTIONS (4)
  - INJECTION SITE REACTION [None]
  - KELOID SCAR [None]
  - THROMBOSIS [None]
  - VISUAL FIELD DEFECT [None]
